FAERS Safety Report 4437947-6 (Version None)
Quarter: 2004Q3

REPORT INFORMATION
  Report Type: 
  Country: None (occurrence: None)
  Receive Date: 20040831
  Receipt Date: 20040830
  Transmission Date: 20050211
  Serious: Yes (Other)
  Sender: FDA-Public Use
  Company Number: US-GLAXOSMITHKLINE-A0523771A

PATIENT
  Age: 68 Year
  Sex: Female

DRUGS (8)
  1. AVANDIA [Suspect]
     Dosage: 4MG TWICE PER DAY
     Route: 048
     Dates: start: 20040701
  2. SYNTHROID [Concomitant]
  3. SINGULAIR [Concomitant]
  4. LISINOPRIL [Concomitant]
  5. ALBUTEROL [Concomitant]
  6. GLUCOTROL [Concomitant]
  7. METFORMIN HCL [Concomitant]
  8. LORATADINE [Concomitant]

REACTIONS (3)
  - ASTHMA [None]
  - FATIGUE [None]
  - SINUSITIS [None]
